FAERS Safety Report 5339738-0 (Version None)
Quarter: 2007Q2

REPORT INFORMATION
  Report Type: 
  Country: None (occurrence: None)
  Receive Date: 20070531
  Receipt Date: 20070523
  Transmission Date: 20071010
  Serious: Yes (Hospitalization, Congenital Anomaly)
  Sender: FDA-Public Use
  Company Number: PHBS2005JP01538

PATIENT
  Age: 1 Day
  Sex: Male
  Weight: 3.8 kg

DRUGS (3)
  1. DEPAS [Suspect]
     Route: 064
  2. SOLANAX [Concomitant]
     Route: 064
  3. LUDIOMIL [Suspect]
     Route: 064

REACTIONS (18)
  - BLOOD CREATINE PHOSPHOKINASE INCREASED [None]
  - BLOOD URINE PRESENT [None]
  - CONGENITAL CENTRAL NERVOUS SYSTEM ANOMALY [None]
  - DECREASED ACTIVITY [None]
  - DRUG EXPOSURE DURING PREGNANCY [None]
  - DRUG WITHDRAWAL SYNDROME NEONATAL [None]
  - EXERCISE LACK OF [None]
  - FEEDING DISORDER [None]
  - HYPERCREATININAEMIA [None]
  - HYPOREFLEXIA [None]
  - HYPOTONIA [None]
  - JOINT CONTRACTURE [None]
  - LISSENCEPHALY [None]
  - MUSCULAR DYSTROPHY [None]
  - MYOGLOBIN BLOOD INCREASED [None]
  - POOR SUCKING REFLEX [None]
  - RHABDOMYOLYSIS [None]
  - SOMNOLENCE [None]
